FAERS Safety Report 11926080 (Version 2)
Quarter: 2016Q1

REPORT INFORMATION
  Report Type: Report from Study
  Country: BR (occurrence: BR)
  Receive Date: 20160119
  Receipt Date: 20160218
  Transmission Date: 20160526
  Serious: Yes (Hospitalization)
  Sender: FDA-Public Use
  Company Number: BR-UCBSA-2016001180

PATIENT
  Age: 67 Year
  Sex: Female
  Weight: 83 kg

DRUGS (3)
  1. LEFLUNOMIDA [Concomitant]
     Active Substance: LEFLUNOMIDE
     Indication: RHEUMATOID ARTHRITIS
     Dosage: 20 MG, ONCE DAILY (QD)
     Route: 048
     Dates: start: 2009
  2. HYDREA [Concomitant]
     Active Substance: HYDROXYUREA
     Indication: POLYCYTHAEMIA VERA
     Dosage: UNK, ONCE DAILY (QD)
     Route: 048
     Dates: start: 2008
  3. CERTOLIZUMAB PEGOL [Suspect]
     Active Substance: CERTOLIZUMAB PEGOL
     Indication: RHEUMATOID ARTHRITIS
     Dosage: EV 15 DAYS
     Dates: start: 201511, end: 2015

REACTIONS (2)
  - Fall [Recovered/Resolved]
  - Upper limb fracture [Unknown]

NARRATIVE: CASE EVENT DATE: 20151212
